FAERS Safety Report 6657285-0 (Version None)
Quarter: 2010Q1

REPORT INFORMATION
  Report Type: 
  Country: None (occurrence: None)
  Receive Date: 20100325
  Receipt Date: 20100310
  Transmission Date: 20100710
  Serious: Yes (Other)
  Sender: FDA-Public Use
  Company Number: 2010SP015357

PATIENT
  Age: 28 Year
  Sex: Male
  Weight: 81.6475 kg

DRUGS (5)
  1. SAPHRIS [Suspect]
     Indication: BIPOLAR DISORDER
     Dosage: 5 MG
     Dates: start: 20100201
  2. SAPHRIS [Suspect]
     Indication: SCHIZOPHRENIA
     Dosage: 5 MG
     Dates: start: 20100201
  3. DEPAKOTE (CON.) [Concomitant]
  4. ABILIFY (CON.) [Concomitant]
  5. BENZOTROPINE (CON.) [Concomitant]

REACTIONS (5)
  - AGITATION [None]
  - GAIT DISTURBANCE [None]
  - SPEECH DISORDER [None]
  - SWELLING FACE [None]
  - SWOLLEN TONGUE [None]
